FAERS Safety Report 17713259 (Version 1)
Quarter: 2020Q2

REPORT INFORMATION
  Report Type: Spontaneous
  Country: MY (occurrence: MY)
  Receive Date: 20200427
  Receipt Date: 20200427
  Transmission Date: 20200714
  Serious: Yes (Other)
  Sender: FDA-Public Use
  Company Number: MY-ROCHE-2584063

PATIENT
  Sex: Female
  Weight: 55 kg

DRUGS (1)
  1. ACTEMRA [Suspect]
     Active Substance: TOCILIZUMAB
     Indication: CORONAVIRUS INFECTION
     Route: 042
     Dates: start: 20200403, end: 20200403

REACTIONS (6)
  - Fibrin D dimer increased [Unknown]
  - Dizziness [Recovered/Resolved]
  - Intentional product use issue [Unknown]
  - Nausea [Recovered/Resolved]
  - Oxygen saturation decreased [Unknown]
  - Off label use [Unknown]

NARRATIVE: CASE EVENT DATE: 20200411
